FAERS Safety Report 22993606 (Version 3)
Quarter: 2023Q4

REPORT INFORMATION
  Report Type: Spontaneous
  Country: IT (occurrence: IT)
  Receive Date: 20230927
  Receipt Date: 20231031
  Transmission Date: 20240110
  Serious: Yes (Other)
  Sender: FDA-Public Use
  Company Number: IT-BAYER-2023A133208

PATIENT
  Age: 75 Year
  Sex: Male

DRUGS (3)
  1. NUBEQA [Suspect]
     Active Substance: DAROLUTAMIDE
     Indication: Hormone-dependent prostate cancer
     Dosage: UNK
     Dates: start: 20230907, end: 20230914
  2. DOCETAXEL [Concomitant]
     Active Substance: DOCETAXEL
     Dosage: UNK
  3. DEGARELIX [Concomitant]
     Active Substance: DEGARELIX

REACTIONS (9)
  - Myalgia [Not Recovered/Not Resolved]
  - Asthenia [Not Recovered/Not Resolved]
  - Nervousness [Recovering/Resolving]
  - Insomnia [Recovering/Resolving]
  - Rash papular [Recovered/Resolved]
  - Psychomotor hyperactivity [Not Recovered/Not Resolved]
  - Pain in extremity [Not Recovered/Not Resolved]
  - Hypertension [None]
  - Depression [Recovering/Resolving]

NARRATIVE: CASE EVENT DATE: 20230907
